FAERS Safety Report 19604223 (Version 2)
Quarter: 2021Q4

REPORT INFORMATION
  Report Type: Spontaneous
  Country: US (occurrence: US)
  Receive Date: 20210723
  Receipt Date: 20211007
  Transmission Date: 20220303
  Serious: No
  Sender: FDA-Public Use
  Company Number: NVSC2021US159338

PATIENT
  Age: 37 Week
  Sex: Female
  Weight: 2.13 kg

DRUGS (1)
  1. ZOLGENSMA [Suspect]
     Active Substance: ONASEMNOGENE ABEPARVOVEC-XIOI
     Indication: Spinal muscular atrophy
     Dosage: 11.7 CC (MORE THAN RECOMMENDED DOSE AS CHILD WAS UNDERWEIGHT), ONCE/SINGLE
     Route: 042
     Dates: start: 20210709

REACTIONS (1)
  - International normalised ratio increased [Unknown]
